FAERS Safety Report 26207085 (Version 1)
Quarter: 2025Q4

REPORT INFORMATION
  Report Type: Spontaneous
  Country: CA (occurrence: CA)
  Receive Date: 20251229
  Receipt Date: 20251229
  Transmission Date: 20260118
  Serious: Yes (Other)
  Sender: AUROBINDO
  Company Number: CA-AUROBINDO-AUR-APL-2025-067848

PATIENT
  Age: 28 Year
  Sex: Female

DRUGS (5)
  1. GABAPENTIN [Suspect]
     Active Substance: GABAPENTIN
     Indication: Product used for unknown indication
     Dosage: 100 MILLIGRAM
     Route: 065
  2. GABAPENTIN [Suspect]
     Active Substance: GABAPENTIN
     Dosage: 400 MILLIGRAM
     Route: 065
  3. GABAPENTIN [Suspect]
     Active Substance: GABAPENTIN
     Dosage: 100 MILLIGRAM, ONCE EVERY 5 DAYS
     Route: 065
  4. KETAMINE [Suspect]
     Active Substance: KETAMINE
     Indication: Schizoaffective disorder
     Dosage: 0.1 GRAM, ONCE A DAY
  5. KETAMINE [Suspect]
     Active Substance: KETAMINE
     Dosage: UNK

REACTIONS (2)
  - Product ineffective [Unknown]
  - Intentional product misuse [Unknown]
